FAERS Safety Report 17024740 (Version 2)
Quarter: 2020Q1

REPORT INFORMATION
  Report Type: Spontaneous
  Country: DE (occurrence: DE)
  Receive Date: 20191113
  Receipt Date: 20200331
  Transmission Date: 20200409
  Serious: Yes (Hospitalization, Other)
  Sender: FDA-Public Use
  Company Number: DE-009507513-1911DEU004066

PATIENT
  Age: 77 Year
  Sex: Female

DRUGS (1)
  1. KEYTRUDA [Suspect]
     Active Substance: PEMBROLIZUMAB
     Indication: MALIGNANT MELANOMA
     Dosage: 400 MILLIGRAM, EVERY 6 WEEKS
     Dates: start: 20190822, end: 20190918

REACTIONS (2)
  - Diabetes mellitus [Recovered/Resolved with Sequelae]
  - Ketoacidosis [Recovered/Resolved with Sequelae]

NARRATIVE: CASE EVENT DATE: 20190918
